FAERS Safety Report 13798558 (Version 2)
Quarter: 2025Q2

REPORT INFORMATION
  Report Type: Spontaneous
  Country: US (occurrence: US)
  Receive Date: 20170727
  Receipt Date: 20250416
  Transmission Date: 20250717
  Serious: Yes (Death, Life-Threatening)
  Sender: PFIZER
  Company Number: US-PFIZER INC-2421322

PATIENT

DRUGS (2)
  1. CLOFARABINE [Suspect]
     Active Substance: CLOFARABINE
     Indication: Acute leukaemia
     Dosage: GIVEN ON DAY 1-5 OF THEARPY
     Route: 065
  2. CYTARABINE [Suspect]
     Active Substance: CYTARABINE
     Indication: Acute leukaemia
     Dosage: 1 G/M^2, GIVEN ON DAY 2-6 OF THERAPY DOSE:1 GRAM(S)/SQUARE
     Route: 065

REACTIONS (2)
  - Dermatitis exfoliative generalised [Fatal]
  - Toxic erythema of chemotherapy [Unknown]
